FAERS Safety Report 14818656 (Version 4)
Quarter: 2019Q2

REPORT INFORMATION
  Report Type: Spontaneous
  Country: US (occurrence: US)
  Receive Date: 20180427
  Receipt Date: 20190627
  Transmission Date: 20190711
  Serious: Yes (Hospitalization, Other)
  Sender: FDA-Public Use
  Company Number: US-PFIZER INC-2018168218

PATIENT
  Age: 88 Year
  Sex: Female
  Weight: 51 kg

DRUGS (4)
  1. XELJANZ XR [Suspect]
     Active Substance: TOFACITINIB CITRATE
     Indication: RHEUMATOID ARTHRITIS
     Dosage: 11 MG, 1X/DAY (AT 12 PM)
     Route: 048
     Dates: start: 20180126, end: 201802
  2. XELJANZ XR [Suspect]
     Active Substance: TOFACITINIB CITRATE
     Dosage: 11 MG, 1X/DAY (AT 12 PM)
     Route: 048
     Dates: end: 20190225
  3. PREDNISONE. [Concomitant]
     Active Substance: PREDNISONE
     Dosage: 5 DF, UNK
  4. HUMIRA [Concomitant]
     Active Substance: ADALIMUMAB
     Dosage: UNK

REACTIONS (5)
  - Red blood cell sedimentation rate increased [Unknown]
  - Influenza [Recovered/Resolved]
  - Osteomyelitis [Recovered/Resolved]
  - Anaemia [Unknown]
  - Movement disorder [Not Recovered/Not Resolved]

NARRATIVE: CASE EVENT DATE: 20180201
